FAERS Safety Report 10419764 (Version 3)
Quarter: 2014Q3

REPORT INFORMATION
  Report Type: Report from Study
  Country: HT (occurrence: HT)
  Receive Date: 20140829
  Receipt Date: 20140922
  Transmission Date: 20150326
  Serious: Yes (Death, Life-Threatening, Hospitalization, Other)
  Sender: FDA-Public Use
  Company Number: HT-BRISTOL-MYERS SQUIBB COMPANY-21190731

PATIENT
  Age: 33 Year
  Sex: Male

DRUGS (5)
  1. PYRIDOXINE [Concomitant]
     Active Substance: PYRIDOXINE
  2. EFAVIRENZ [Suspect]
     Active Substance: EFAVIRENZ
     Dosage: LAST DOSE ON:02-JUL-2014?HS-AT BEDTIME
     Route: 048
     Dates: start: 20130905
  3. ISONIAZID. [Suspect]
     Active Substance: ISONIAZID
     Dosage: LAST DOSE ON: 02JUL2014?QAM-EVERY MORNING
     Route: 048
     Dates: start: 20130905
  4. EMTRICITABINE/TENOFOVIR DISOPROXIL FUMARATE [Suspect]
     Active Substance: EMTRICITABINE\TENOFOVIR DISOPROXIL
     Dosage: LAST DOSE ON: 02JUL2014
     Route: 048
     Dates: start: 20130905, end: 20140703
  5. COTRIMOXAZOLE [Concomitant]
     Active Substance: SULFAMETHOXAZOLE\TRIMETHOPRIM
     Indication: ANTIFUNGAL PROPHYLAXIS
     Dosage: EVERY MORNING
     Route: 048
     Dates: end: 20140702

REACTIONS (3)
  - Anaemia [Unknown]
  - Sepsis [Fatal]
  - Respiratory tract infection [Fatal]

NARRATIVE: CASE EVENT DATE: 20140703
